FAERS Safety Report 23544964 (Version 1)
Quarter: 2024Q1

REPORT INFORMATION
  Report Type: Spontaneous
  Country: DE (occurrence: DE)
  Receive Date: 20240220
  Receipt Date: 20240220
  Transmission Date: 20240410
  Serious: Yes (Hospitalization, Other)
  Sender: FDA-Public Use
  Company Number: DE-EMBRYOTOX-202305294

PATIENT
  Age: 1 Day
  Sex: Female
  Weight: 2.55 kg

DRUGS (2)
  1. SERTRALINE [Suspect]
     Active Substance: SERTRALINE HYDROCHLORIDE
     Indication: Depression
     Dosage: 75 [MG/D ]
     Route: 064
     Dates: start: 20220920, end: 20230621
  2. QUETIAPINE [Suspect]
     Active Substance: QUETIAPINE
     Indication: Post-traumatic stress disorder
     Dosage: 25 [MG/D ]
     Route: 064
     Dates: start: 20220920, end: 20230621

REACTIONS (4)
  - Respiratory disorder neonatal [Recovered/Resolved]
  - Small for dates baby [Recovered/Resolved]
  - Foetal exposure during pregnancy [Unknown]
  - Atrial septal defect [Unknown]

NARRATIVE: CASE EVENT DATE: 20230601
